FAERS Safety Report 7654425-1 (Version None)
Quarter: 2011Q3

REPORT INFORMATION
  Report Type: 
  Country: None (occurrence: None)
  Receive Date: 20110803
  Receipt Date: 20110802
  Transmission Date: 20111222
  Serious: Yes (Hospitalization, Other)
  Sender: FDA-Public Use
  Company Number: CA-ABBOTT-11P-028-0843311-00

PATIENT
  Sex: Male

DRUGS (1)
  1. LUPRON DEPOT [Suspect]
     Indication: PROSTATE CANCER
     Route: 030
     Dates: start: 20061108

REACTIONS (6)
  - MOVEMENT DISORDER [None]
  - DISORIENTATION [None]
  - INCOHERENT [None]
  - APNOEA [None]
  - PSORIASIS [None]
  - OPEN WOUND [None]
